FAERS Safety Report 23579830 (Version 1)
Quarter: 2024Q1

REPORT INFORMATION
  Report Type: Spontaneous
  Country: US (occurrence: None)
  Receive Date: 20240228
  Receipt Date: 20240228
  Transmission Date: 20240409
  Serious: Yes (Hospitalization, Other)
  Sender: FDA-Public Use
  Company Number: None

PATIENT
  Age: 48 Year
  Sex: Male
  Weight: 60 kg

DRUGS (1)
  1. HECTOROL [Suspect]
     Active Substance: DOXERCALCIFEROL
     Indication: Hyperparathyroidism secondary
     Dosage: OTHER FREQUENCY : EVERY TREATMENT;?
     Route: 040
     Dates: start: 20240113, end: 20240113

REACTIONS (3)
  - Dialysis [None]
  - Cardio-respiratory arrest [None]
  - Drug hypersensitivity [None]

NARRATIVE: CASE EVENT DATE: 20240113
